FAERS Safety Report 10178103 (Version 1)
Quarter: 2014Q2

REPORT INFORMATION
  Report Type: Spontaneous
  Country: CA (occurrence: CA)
  Receive Date: 20140519
  Receipt Date: 20140519
  Transmission Date: 20141212
  Serious: Yes (Other)
  Sender: FDA-Public Use
  Company Number: CA-009507513-1405CAN008027

PATIENT
  Age: 5 Year
  Sex: Female

DRUGS (7)
  1. ZENHALE [Suspect]
     Dosage: 2 DF, BID
     Route: 065
  2. ZENHALE [Suspect]
     Dosage: 1 DF, BID
     Route: 065
  3. DEXAMETHASONE [Concomitant]
     Route: 048
  4. FLINTSTONES MULTIVITAMIN [Concomitant]
     Route: 048
  5. PREVACID [Concomitant]
  6. SINGULAIR [Concomitant]
     Route: 048
  7. VENTOLIN (ALBUTEROL) [Concomitant]

REACTIONS (2)
  - Blood cortisol decreased [Unknown]
  - Adrenal insufficiency [Unknown]
